FAERS Safety Report 5815628-1 (Version None)
Quarter: 2008Q3

REPORT INFORMATION
  Report Type: 
  Country: None (occurrence: None)
  Receive Date: 20080716
  Receipt Date: 20080701
  Transmission Date: 20090109
  Serious: Yes (Other)
  Sender: FDA-Public Use
  Company Number: IMP_03764_2008

PATIENT

DRUGS (1)
  1. CLARITIN-D [Suspect]
     Indication: DRUG USE FOR UNKNOWN INDICATION
     Dosage: (DF)
     Dates: start: 20080629

REACTIONS (4)
  - GENERALISED OEDEMA [None]
  - HEART RATE INCREASED [None]
  - RASH [None]
  - TREMOR [None]
